FAERS Safety Report 5486043-8 (Version None)
Quarter: 2007Q4

REPORT INFORMATION
  Report Type: 
  Country: None (occurrence: None)
  Receive Date: 20071012
  Receipt Date: 20071004
  Transmission Date: 20080405
  Serious: Yes (Other)
  Sender: FDA-Public Use
  Company Number: 2007SP020250

PATIENT
  Age: 51 Year
  Sex: Male

DRUGS (2)
  1. PEGETRON (PEGINTERFERON ALFA-2B W/RIBAVIRIN) (PEGYLATED INTERFERON ALF [Suspect]
     Indication: HEPATITIS C
     Dosage: 120 MCG;QW; 1200 MG;QD
     Dates: start: 20070525
  2. PEGETRON (PEGINTERFERON ALFA-2B W/RIBAVIRIN) (PEGYLATED INTERFERON ALF [Suspect]
     Indication: HEPATITIS C
     Dosage: 120 MCG;QW; 1200 MG;QD
     Dates: start: 20070525

REACTIONS (2)
  - HAEMOPTYSIS [None]
  - PHARYNGOLARYNGEAL PAIN [None]
